FAERS Safety Report 13850696 (Version 2)
Quarter: 2017Q3

REPORT INFORMATION
  Report Type: Report from Study
  Country: None (occurrence: MX)
  Receive Date: 20170810
  Receipt Date: 20170811
  Transmission Date: 20171127
  Serious: Yes (Hospitalization, Other)
  Sender: FDA-Public Use
  Company Number: MX-ABBVIE-17K-107-2065757-00

PATIENT
  Age: 55 Year
  Sex: Male
  Weight: 48 kg

DRUGS (1)
  1. HUMIRA [Suspect]
     Active Substance: ADALIMUMAB
     Indication: CROHN^S DISEASE
     Route: 058
     Dates: start: 20170519

REACTIONS (12)
  - Anaemia [Unknown]
  - Aphasia [Not Recovered/Not Resolved]
  - Pallor [Not Recovered/Not Resolved]
  - Oedema peripheral [Not Recovered/Not Resolved]
  - Dyspnoea [Not Recovered/Not Resolved]
  - Appendicitis [Unknown]
  - Haematoma [Not Recovered/Not Resolved]
  - Lethargy [Not Recovered/Not Resolved]
  - Weight decreased [Not Recovered/Not Resolved]
  - Intestinal perforation [Unknown]
  - Nephritis [Unknown]
  - Cardiac output decreased [Unknown]

NARRATIVE: CASE EVENT DATE: 2017
